FAERS Safety Report 10141756 (Version 2)
Quarter: 2014Q3

REPORT INFORMATION
  Report Type: Spontaneous
  Country: IT (occurrence: IT)
  Receive Date: 20140429
  Receipt Date: 20140724
  Transmission Date: 20150326
  Serious: Yes (Hospitalization)
  Sender: FDA-Public Use
  Company Number: IT-PFIZER INC-2014116879

PATIENT
  Age: 84 Year
  Sex: Male

DRUGS (4)
  1. CARDIOASPIRIN [Concomitant]
     Active Substance: ASPIRIN
     Indication: THROMBOSIS PROPHYLAXIS
     Dosage: UNK
     Dates: start: 20140101, end: 20140309
  2. VASTAREL [Concomitant]
     Active Substance: TRIMETAZIDINE DIHYDROCHLORIDE
     Indication: ANGINA PECTORIS
     Dosage: UNK
     Dates: start: 20140101, end: 20140309
  3. MADOPAR [Concomitant]
     Active Substance: BENSERAZIDE HYDROCHLORIDE\LEVODOPA
     Indication: VASCULAR PARKINSONISM
     Dosage: UNK
     Dates: start: 20140101, end: 20140309
  4. AMIODARONE HCL [Suspect]
     Active Substance: AMIODARONE HYDROCHLORIDE
     Indication: ANGINA PECTORIS
     Dosage: 200 MG, DAILY
     Route: 048
     Dates: start: 20140101, end: 20140309

REACTIONS (4)
  - Vomiting [Recovering/Resolving]
  - Electrocardiogram QT prolonged [Recovering/Resolving]
  - Syncope [Recovering/Resolving]
  - Atrioventricular block first degree [Recovering/Resolving]

NARRATIVE: CASE EVENT DATE: 20140309
